FAERS Safety Report 6145867-4 (Version None)
Quarter: 2009Q2

REPORT INFORMATION
  Report Type: 
  Country: None (occurrence: None)
  Receive Date: 20090403
  Receipt Date: 20090319
  Transmission Date: 20091009
  Serious: Yes (Other)
  Sender: FDA-Public Use
  Company Number: 2009EK000019

PATIENT
  Age: 37 Year
  Sex: Female
  Weight: 49 kg

DRUGS (11)
  1. CARDENE [Suspect]
     Indication: HYPERTENSION
     Dosage: 3 MG; IV
     Route: 042
  2. LORAZEPAM [Concomitant]
  3. HYDROXYZINE [Concomitant]
  4. LACTATED RINGER'S [Concomitant]
  5. PROPOFOL [Concomitant]
  6. SUFENTANIL [Concomitant]
  7. ATRACURIUM [Concomitant]
  8. ISOFLURANE [Concomitant]
  9. OXYGEN [Concomitant]
  10. NITROUS OXIDE [Concomitant]
  11. NOREPINEPHRINE [Concomitant]

REACTIONS (4)
  - BLOOD PRESSURE SYSTOLIC INCREASED [None]
  - CHEST PAIN [None]
  - TROPONIN INCREASED [None]
  - VENTRICULAR HYPOKINESIA [None]
